FAERS Safety Report 12435500 (Version 1)
Quarter: 2016Q2

REPORT INFORMATION
  Report Type: Spontaneous
  Country: US (occurrence: US)
  Receive Date: 20160603
  Receipt Date: 20160603
  Transmission Date: 20160815
  Serious: Yes (Other)
  Sender: FDA-Public Use
  Company Number: US-ROCHE-1618418

PATIENT
  Sex: Female

DRUGS (2)
  1. XELODA [Suspect]
     Active Substance: CAPECITABINE
     Indication: PRODUCT USED FOR UNKNOWN INDICATION
     Dosage: 500MGX3 IN MORNING AND 2 TWELVE HOURS LATER
     Route: 065
  2. GREEN TEA EXTRACT [Concomitant]

REACTIONS (3)
  - Pancytopenia [Not Recovered/Not Resolved]
  - Underweight [Unknown]
  - Fatigue [Not Recovered/Not Resolved]
